FAERS Safety Report 5046988-X (Version None)
Quarter: 2006Q2

REPORT INFORMATION
  Report Type: 
  Country: None (occurrence: None)
  Receive Date: 20060630
  Receipt Date: 20060622
  Transmission Date: 20061013
  Serious: Yes (Hospitalization)
  Sender: FDA-Public Use
  Company Number: 2006079187

PATIENT
  Age: 26 Year
  Sex: Female
  Weight: 55.8 kg

DRUGS (3)
  1. REVATIO [Suspect]
     Indication: PULMONARY HYPERTENSION
     Dosage: 50 MG (25 MG, 2 IN 1 D), ORAL
     Route: 048
     Dates: start: 20040408
  2. WARFARIN SODIUM [Concomitant]
  3. DORNER (BERAPROST SODIUM) [Concomitant]

REACTIONS (3)
  - ATRIAL FLUTTER [None]
  - IRON DEFICIENCY ANAEMIA [None]
  - PULMONARY HYPERTENSION [None]
